FAERS Safety Report 9323021 (Version 2)
Quarter: 2014Q1

REPORT INFORMATION
  Report Type: Spontaneous
  Country: US (occurrence: US)
  Receive Date: 20130603
  Receipt Date: 20140214
  Transmission Date: 20141002
  Serious: Yes (Hospitalization, Other)
  Sender: FDA-Public Use
  Company Number: US-B.I. PHARMACEUTICALS,INC./RIDGEFIELD-2013-BI-14877BP

PATIENT
  Sex: Male
  Weight: 86.18 kg

DRUGS (14)
  1. PRADAXA [Suspect]
     Indication: ATRIAL FIBRILLATION
     Dosage: 300 MG
     Route: 048
     Dates: start: 20110607, end: 20110904
  2. LIPITOR [Concomitant]
     Dosage: 40 MG
     Route: 048
  3. POTASSIUM CHLORIDE [Concomitant]
     Dosage: 10 MEQ
     Route: 048
  4. RYTHMOL SR [Concomitant]
     Dosage: 450 MG
     Route: 048
  5. DIOVAN [Concomitant]
     Dosage: 40 MG
     Route: 048
  6. ASACOL [Concomitant]
     Indication: COLITIS ULCERATIVE
     Dosage: 800 MG
     Route: 048
  7. ZETIA [Concomitant]
     Dosage: 10 MG
     Route: 048
  8. LASIX [Concomitant]
     Dosage: 40 MG
     Route: 048
  9. IMDUR [Concomitant]
     Dosage: 30 MG
     Route: 048
  10. RANEXA [Concomitant]
     Dosage: 1000 MG
     Route: 048
  11. METOPROLOL [Concomitant]
     Dosage: 25 MG
     Route: 048
  12. MULTIVITAMINS [Concomitant]
     Route: 048
  13. PSYLLIUM [Concomitant]
     Route: 048
  14. NITROSTAT [Concomitant]
     Route: 060

REACTIONS (4)
  - Gastrointestinal haemorrhage [Unknown]
  - Haemorrhagic anaemia [Unknown]
  - Acute prerenal failure [Unknown]
  - Blood urine present [Unknown]
